FAERS Safety Report 16835257 (Version 2)
Quarter: 2021Q3

REPORT INFORMATION
  Report Type: Spontaneous
  Country: US (occurrence: US)
  Receive Date: 20190920
  Receipt Date: 20210708
  Transmission Date: 20211014
  Serious: Yes (Hospitalization, Other)
  Sender: FDA-Public Use
  Company Number: US-TEVA-2019-US-1110222

PATIENT
  Sex: Female
  Weight: 72.64 kg

DRUGS (6)
  1. VALSARTAN W/HYDROCHLOROTHIAZIDE AUROBINDO [Suspect]
     Active Substance: HYDROCHLOROTHIAZIDE\VALSARTAN
     Indication: HYPERTENSION
     Dosage: 160MG/12.5MG
     Route: 048
     Dates: start: 20140516, end: 20150212
  2. ASPIRIN. [Concomitant]
     Active Substance: ASPIRIN
     Dosage: 81MG/DAY
     Dates: start: 2010
  3. VALSARTAN W/HYDROCHLOROTHIAZIDE ACTAVIS [Suspect]
     Active Substance: HYDROCHLOROTHIAZIDE\VALSARTAN
     Indication: HYPERTENSION
     Dosage: 160MG/12.5MG
     Route: 048
     Dates: start: 20150129, end: 20180602
  4. MULTIVITAMIN [Concomitant]
     Active Substance: VITAMINS
     Dosage: ONCE DAILY
     Dates: start: 2010
  5. DIOVAN HCT [Suspect]
     Active Substance: HYDROCHLOROTHIAZIDE\VALSARTAN
     Indication: HYPERTENSION
     Dosage: 160/12.5MG TAKEN DAILY
     Dates: start: 1994, end: 20140130
  6. VALSARTAN W/HYDROCHLOROTHIAZIDE MYLAN [Suspect]
     Active Substance: HYDROCHLOROTHIAZIDE\VALSARTAN
     Indication: HYPERTENSION
     Dosage: 160MG/12.5MG
     Route: 048
     Dates: start: 20140130, end: 20140510

REACTIONS (1)
  - Colon cancer stage III [Recovered/Resolved]
